FAERS Safety Report 17155634 (Version 1)
Quarter: 2019Q4

REPORT INFORMATION
  Report Type: Spontaneous
  Country: US (occurrence: US)
  Receive Date: 20191215
  Receipt Date: 20191215
  Transmission Date: 20200122
  Serious: No
  Sender: FDA-Public Use
  Company Number: US-ENDO PHARMACEUTICALS INC-2019-102097

PATIENT
  Age: 47 Year
  Sex: Male
  Weight: 68.03 kg

DRUGS (4)
  1. XIAFLEX [Suspect]
     Active Substance: COLLAGENASE CLOSTRIDIUM HISTOLYTICUM
     Dosage: UNK UNKNOWN, FIRST CYCLE; TWO INJECTIONS
     Route: 026
     Dates: start: 201807
  2. SYNTHROID [Concomitant]
     Active Substance: LEVOTHYROXINE SODIUM
     Indication: HYPOTHYROIDISM
  3. XIAFLEX [Suspect]
     Active Substance: COLLAGENASE CLOSTRIDIUM HISTOLYTICUM
     Dosage: UNK UNKNOWN, SECOND CYCLE; FIRST INJECTIONS
     Route: 026
     Dates: start: 201902
  4. XIAFLEX [Suspect]
     Active Substance: COLLAGENASE CLOSTRIDIUM HISTOLYTICUM
     Indication: PEYRONIE^S DISEASE
     Dosage: UNK UNKNOWN, SECOND CYCLE; SECOND INJECTIONS
     Route: 026
     Dates: start: 201902

REACTIONS (6)
  - Penile pain [Recovered/Resolved]
  - Testicular pain [Recovered/Resolved]
  - Penile swelling [Recovered/Resolved]
  - Skin discolouration [Recovered/Resolved]
  - Testicular swelling [Recovered/Resolved]
  - Peyronie^s disease [Not Recovered/Not Resolved]

NARRATIVE: CASE EVENT DATE: 201902
